FAERS Safety Report 19588083 (Version 1)
Quarter: 2021Q3

REPORT INFORMATION
  Report Type: Spontaneous
  Country: US (occurrence: US)
  Receive Date: 20210721
  Receipt Date: 20210721
  Transmission Date: 20211014
  Serious: No
  Sender: FDA-Public Use
  Company Number: None

PATIENT
  Age: 76 Year
  Sex: Female
  Weight: 59.2 kg

DRUGS (18)
  1. MEKINIST [Suspect]
     Active Substance: TRAMETINIB DIMETHYL SULFOXIDE
     Indication: HEPATIC CANCER
     Route: 048
     Dates: start: 20210603, end: 20210719
  2. TAFINLAR [Suspect]
     Active Substance: DABRAFENIB MESYLATE
     Indication: HEPATIC CANCER
     Route: 048
     Dates: start: 20210603, end: 20210719
  3. AMLODIPINE BESYLATE. [Concomitant]
     Active Substance: AMLODIPINE BESYLATE
  4. CELEBREX [Concomitant]
     Active Substance: CELECOXIB
  5. HUMALOG KWIKPEN [Concomitant]
     Active Substance: INSULIN LISPRO
  6. OMEPRAZOLE. [Concomitant]
     Active Substance: OMEPRAZOLE
  7. PROCHLORPERAZINE MALEATE. [Concomitant]
     Active Substance: PROCHLORPERAZINE MALEATE
  8. ALEVE [Concomitant]
     Active Substance: NAPROXEN SODIUM
  9. LEVEMIR [Concomitant]
     Active Substance: INSULIN DETEMIR
  10. METAXALONE. [Concomitant]
     Active Substance: METAXALONE
  11. PREDNISONE. [Concomitant]
     Active Substance: PREDNISONE
  12. LABETALOL HCL [Concomitant]
     Active Substance: LABETALOL HYDROCHLORIDE
  13. METFORMIN HCL [Concomitant]
     Active Substance: METFORMIN HYDROCHLORIDE
  14. ONETOUCH ULTRA [Concomitant]
  15. LEVOTHYROXINE SODIUM. [Concomitant]
     Active Substance: LEVOTHYROXINE SODIUM
  16. ROSUVASTATIN CALCIUM. [Concomitant]
     Active Substance: ROSUVASTATIN CALCIUM
  17. DIPHENOXYLATE?ATROPINE [Concomitant]
     Active Substance: ATROPINE\DIPHENOXYLATE
  18. VALSARTAN. [Concomitant]
     Active Substance: VALSARTAN

REACTIONS (2)
  - Fatigue [None]
  - Chills [None]

NARRATIVE: CASE EVENT DATE: 20210719
